FAERS Safety Report 9148837 (Version 1)
Quarter: 2013Q1

REPORT INFORMATION
  Report Type: Spontaneous
  Country: IT (occurrence: None)
  Receive Date: 20130131
  Receipt Date: 20130131
  Transmission Date: 20140127
  Serious: Yes (Other)
  Sender: FDA-Public Use
  Company Number: KAD201301-000113

PATIENT
  Age: 46 Year
  Sex: Male

DRUGS (3)
  1. RIBAVIRIN [Suspect]
     Indication: CHRONIC HEPATITIS C
  2. PEGYLATED INTERFERON ALFA-2B (PEGYLATED INTERFERON ALFA-2B) [Suspect]
     Indication: CHRONIC HEPATITIS C
     Dosage: 150 MCG ONCE A WEEK (OR 1.5 MCG/KG/WEEK), SUBCUTANEOUS
     Route: 058
  3. CITALOPRAM (CITALOPRAM) [Suspect]
     Indication: DEPRESSION

REACTIONS (6)
  - Alopecia universalis [None]
  - Depression [None]
  - Fatigue [None]
  - Pyrexia [None]
  - Viral infection [None]
  - Disease recurrence [None]
